FAERS Safety Report 22128001 (Version 2)
Quarter: 2024Q1

REPORT INFORMATION
  Report Type: Report from Study
  Country: US (occurrence: US)
  Receive Date: 20230323
  Receipt Date: 20240314
  Transmission Date: 20240409
  Serious: Yes (Hospitalization)
  Sender: FDA-Public Use
  Company Number: US-ABBVIE-4698280

PATIENT
  Age: 74 Year
  Sex: Female

DRUGS (2)
  1. IMBRUVICA [Suspect]
     Active Substance: IBRUTINIB
     Indication: Waldenstrom^s macroglobulinaemia
     Route: 048
     Dates: start: 20220303
  2. IMBRUVICA [Suspect]
     Active Substance: IBRUTINIB
     Indication: Waldenstrom^s macroglobulinaemia
     Route: 048
     Dates: start: 20210412, end: 20220803

REACTIONS (4)
  - Rib fracture [Unknown]
  - Sinusitis [Unknown]
  - Feeling cold [Unknown]
  - Back pain [Unknown]

NARRATIVE: CASE EVENT DATE: 20221201
